FAERS Safety Report 26005383 (Version 1)
Quarter: 2025Q4

REPORT INFORMATION
  Report Type: Spontaneous
  Country: US (occurrence: US)
  Receive Date: 20251106
  Receipt Date: 20251106
  Transmission Date: 20260118
  Serious: No
  Sender: INSMED
  Company Number: US-INSMED, INC.-2025-03914-US

PATIENT
  Sex: Female

DRUGS (2)
  1. BRINSUPRI [Suspect]
     Active Substance: BRENSOCATIB
     Indication: Product used for unknown indication
     Dosage: 10 MILLIGRAM
     Route: 048
     Dates: end: 20250912
  2. BRINSUPRI [Suspect]
     Active Substance: BRENSOCATIB
     Dosage: 10 MILLIGRAM
     Route: 048
     Dates: start: 20250916

REACTIONS (3)
  - Adverse drug reaction [Unknown]
  - Product dose omission issue [Unknown]
  - Product coating issue [Unknown]

NARRATIVE: CASE EVENT DATE: 20250911
